FAERS Safety Report 24274641 (Version 2)
Quarter: 2024Q4

REPORT INFORMATION
  Report Type: Report from Study
  Country: US (occurrence: US)
  Receive Date: 20240902
  Receipt Date: 20241002
  Transmission Date: 20250115
  Serious: Yes (Hospitalization, Other)
  Sender: ABBVIE
  Company Number: US-ABBVIE-5898543

PATIENT
  Sex: Female

DRUGS (2)
  1. IMBRUVICA [Suspect]
     Active Substance: IBRUTINIB
     Indication: Non-Hodgkin^s lymphoma
     Route: 048
     Dates: end: 2024
  2. IMBRUVICA [Suspect]
     Active Substance: IBRUTINIB
     Indication: Non-Hodgkin^s lymphoma
     Route: 048
     Dates: start: 202408

REACTIONS (9)
  - Delusional disorder, unspecified type [Unknown]
  - Brain neoplasm [Recovered/Resolved]
  - COVID-19 [Unknown]
  - Pseudostroke [Unknown]
  - Contusion [Unknown]
  - Skin haemorrhage [Unknown]
  - Mood swings [Unknown]
  - Hallucination [Unknown]
  - Atrial fibrillation [Unknown]
